FAERS Safety Report 18043935 (Version 1)
Quarter: 2020Q3

REPORT INFORMATION
  Report Type: Spontaneous
  Country: US (occurrence: US)
  Receive Date: 20200717
  Receipt Date: 20200717
  Transmission Date: 20201103
  Serious: Yes (Death)
  Sender: FDA-Public Use
  Company Number: None

PATIENT
  Age: 93 Year
  Sex: Male
  Weight: 69.1 kg

DRUGS (19)
  1. QUETIAPINE. [Concomitant]
     Active Substance: QUETIAPINE
  2. GUAIFENESIN (MUCINE) [Concomitant]
  3. MIRABEGRON (MYRBETRI [Concomitant]
  4. MECLIZINE (MECLIZINE 2 [Concomitant]
  5. TAMSULOSIN (FLOMAX [Concomitant]
  6. RADIATION [Suspect]
     Active Substance: RADIATION THERAPY
  7. ALLOPURINOL. [Concomitant]
     Active Substance: ALLOPURINOL
  8. DONEPEZIL (ARICEPT [Concomitant]
  9. IPRATROPIUM NASAL (ATR) [Concomitant]
  10. FUROSEMIDE (LASIX [Concomitant]
  11. MISC MEDICATION TNF [Concomitant]
  12. TIMOLOL OPTHALMIC [Concomitant]
  13. MULTIVITAMIN [Concomitant]
     Active Substance: VITAMINS
  14. NITROGLYCERIN. [Concomitant]
     Active Substance: NITROGLYCERIN
  15. POTASSIUM CHLORIDE. [Concomitant]
     Active Substance: POTASSIUM CHLORIDE
  16. ELIQUIS [Concomitant]
     Active Substance: APIXABAN
  17. CARVEDILOL. [Concomitant]
     Active Substance: CARVEDILOL
  18. SOLIFENACIN (VESICARE [Concomitant]
  19. LATANOPROST OPHTHALM [Concomitant]

REACTIONS (3)
  - Cough [None]
  - Pyrexia [None]
  - COVID-19 pneumonia [None]

NARRATIVE: CASE EVENT DATE: 20200715
